FAERS Safety Report 6600350-4 (Version None)
Quarter: 2010Q1

REPORT INFORMATION
  Report Type: 
  Country: None (occurrence: None)
  Receive Date: 20100217
  Receipt Date: 20100204
  Transmission Date: 20100710
  Serious: Yes (Other)
  Sender: FDA-Public Use
  Company Number: 230198J10BRA

PATIENT
  Sex: Female

DRUGS (3)
  1. REBIF [Suspect]
     Indication: RELAPSING-REMITTING MULTIPLE SCLEROSIS
     Dosage: 44 MCG, 3 IN 1 WEEKS
     Dates: start: 20090727
  2. OTHERS (ALL OTHER THERAPEUTIC PRODUCTS) [Concomitant]
  3. LOXONIN (LOXOPROFEN SODIUM) [Concomitant]

REACTIONS (3)
  - NEURITIS [None]
  - OPTIC NEURITIS [None]
  - VISION BLURRED [None]
